FAERS Safety Report 8208767-1 (Version None)
Quarter: 2012Q1

REPORT INFORMATION
  Report Type: 
  Country: None (occurrence: None)
  Receive Date: 20120314
  Receipt Date: 20120309
  Transmission Date: 20120608
  Serious: Yes (Other)
  Sender: FDA-Public Use
  Company Number: CA-PURDUE-CAN-2012-0002705

PATIENT
  Age: 22 Year
  Sex: Female

DRUGS (12)
  1. DILAUDID [Suspect]
     Indication: PRODUCT USED FOR UNKNOWN INDICATION
     Route: 065
  2. OXYCONTIN [Suspect]
     Route: 042
  3. OXYCONTIN [Suspect]
     Route: 042
  4. PERCOCET [Suspect]
     Indication: PRODUCT USED FOR UNKNOWN INDICATION
     Route: 065
  5. OXYCONTIN [Suspect]
     Indication: PRODUCT USED FOR UNKNOWN INDICATION
     Dosage: 480 MG, DAILY
     Route: 065
  6. CODEINE SULFATE [Suspect]
     Indication: PRODUCT USED FOR UNKNOWN INDICATION
     Route: 065
  7. COCAINE [Suspect]
     Indication: PRODUCT USED FOR UNKNOWN INDICATION
     Route: 065
  8. OXYCONTIN [Suspect]
     Indication: PRODUCT USED FOR UNKNOWN INDICATION
     Dosage: 40 MG, DAILY
     Route: 045
  9. MORPHINE SULFATE [Suspect]
     Indication: PRODUCT USED FOR UNKNOWN INDICATION
     Route: 065
  10. OXYCONTIN [Suspect]
     Route: 055
  11. OXYCONTIN [Suspect]
     Route: 055
  12. OXYCONTIN [Suspect]
     Route: 045

REACTIONS (10)
  - INJURY [None]
  - PAIN [None]
  - CRYING [None]
  - EUPHORIC MOOD [None]
  - DRUG DEPENDENCE [None]
  - VOMITING [None]
  - HYPERHIDROSIS [None]
  - SUBSTANCE ABUSE [None]
  - DRUG WITHDRAWAL SYNDROME [None]
  - HAEMATEMESIS [None]
